FAERS Safety Report 19494104 (Version 1)
Quarter: 2021Q3

REPORT INFORMATION
  Report Type: Spontaneous
  Country: US (occurrence: US)
  Receive Date: 20210701
  Receipt Date: 20210701
  Transmission Date: 20211014
  Serious: No
  Sender: FDA-Public Use
  Company Number: None

PATIENT
  Age: 39 Year
  Sex: Male
  Weight: 75.15 kg

DRUGS (2)
  1. SYNTHROID [Suspect]
     Active Substance: LEVOTHYROXINE SODIUM
     Indication: HYPERTHYROIDISM
     Dosage: ?          OTHER STRENGTH:125 MCG;?
     Route: 048
     Dates: start: 20190726, end: 20200316
  2. IBUPROFEN 600 MG [Concomitant]
     Active Substance: IBUPROFEN

REACTIONS (11)
  - Psychomotor hyperactivity [None]
  - Temperature intolerance [None]
  - Fatigue [None]
  - Insomnia [None]
  - Anxiety [None]
  - Dyskinesia [None]
  - Hyperphagia [None]
  - Headache [None]
  - Hyperhidrosis [None]
  - Weight decreased [None]
  - Diarrhoea [None]

NARRATIVE: CASE EVENT DATE: 20190726
